FAERS Safety Report 9308903 (Version 1)
Quarter: 2013Q2

REPORT INFORMATION
  Report Type: Spontaneous
  Country: FR (occurrence: FR)
  Receive Date: 20130524
  Receipt Date: 20130524
  Transmission Date: 20140414
  Serious: Yes (Other)
  Sender: FDA-Public Use
  Company Number: FR-009507513-1207FRA000899

PATIENT
  Age: 48 Year
  Sex: Female
  Weight: 82 kg

DRUGS (1)
  1. ESMERON [Suspect]

REACTIONS (2)
  - Product quality issue [Unknown]
  - Sedation [Unknown]
